APPROVED DRUG PRODUCT: ENTOCORT EC
Active Ingredient: BUDESONIDE
Strength: 3MG
Dosage Form/Route: CAPSULE, DELAYED RELEASE;ORAL
Application: N021324 | Product #001 | TE Code: AB
Applicant: PADAGIS US LLC
Approved: Oct 2, 2001 | RLD: Yes | RS: Yes | Type: RX